FAERS Safety Report 6156580-1 (Version None)
Quarter: 2009Q2

REPORT INFORMATION
  Report Type: 
  Country: None (occurrence: None)
  Receive Date: 20090416
  Receipt Date: 20061120
  Transmission Date: 20091009
  Serious: Yes (Hospitalization)
  Sender: FDA-Public Use
  Company Number: DE-NOVOPROD-258734

PATIENT
  Age: 59 Year
  Sex: Female

DRUGS (4)
  1. ACTIVELLE [Suspect]
     Indication: HORMONE REPLACEMENT THERAPY
     Dosage: UNK, QD
     Route: 048
     Dates: start: 20020701, end: 20060201
  2. FELO-PUREN [Concomitant]
     Dosage: 5 MG, QD
     Route: 048
  3. ATEHEXAL [Concomitant]
     Dosage: 50 MG, QD
     Route: 048
  4. CALCIUM [Concomitant]
     Dosage: UNK, QD
     Route: 048

REACTIONS (1)
  - CEREBRAL INFARCTION [None]
